FAERS Safety Report 7206628-8 (Version None)
Quarter: 2011Q1

REPORT INFORMATION
  Report Type: 
  Country: None (occurrence: None)
  Receive Date: 20110103
  Receipt Date: 20101223
  Transmission Date: 20110831
  Serious: Yes (Other)
  Sender: FDA-Public Use
  Company Number: IT-JNJFOC-20101208399

PATIENT
  Age: 32 Year
  Sex: Male

DRUGS (1)
  1. HALDOL 0.2% [Suspect]
     Indication: ILL-DEFINED DISORDER
     Route: 048

REACTIONS (3)
  - SELF-MEDICATION [None]
  - DYSKINESIA [None]
  - DYSTONIA [None]
